FAERS Safety Report 6973167-9 (Version None)
Quarter: 2010Q3

REPORT INFORMATION
  Report Type: 
  Country: None (occurrence: None)
  Receive Date: 20100909
  Receipt Date: 20100901
  Transmission Date: 20110219
  Serious: Yes (Hospitalization, Other)
  Sender: FDA-Public Use
  Company Number: US-ROCHE-723076

PATIENT
  Age: 69 Year
  Sex: Female
  Weight: 55.8 kg

DRUGS (23)
  1. BEVACIZUMAB [Suspect]
     Dosage: DAY1, EXP DATE: 31 JANUARY 2011
     Route: 042
     Dates: start: 20100119
  2. BEVACIZUMAB [Suspect]
     Route: 042
     Dates: start: 20100209
  3. BEVACIZUMAB [Suspect]
     Dosage: DAY 1, EVERY 3 WEEKS
     Route: 042
     Dates: start: 20100818
  4. DOCETAXEL [Suspect]
     Dosage: DAY 1, EXPIRY DATE: AUGUST 2012
     Route: 042
     Dates: start: 20100119
  5. DOCETAXEL [Suspect]
     Route: 042
     Dates: start: 20100209
  6. GEMCITABINE [Suspect]
     Dosage: DAY 1 + 8, EXPIRY DATE: JULY 2011
     Route: 042
     Dates: start: 20100119
  7. GEMCITABINE [Suspect]
     Route: 042
     Dates: start: 20100209
  8. PEGFILGRASTIM [Concomitant]
     Route: 058
     Dates: start: 20100126
  9. POTASSIUM CHLORIDE [Concomitant]
     Dosage: FREQ: QD
     Route: 048
  10. BMX COCKTAIL [Concomitant]
     Dosage: DRUG: BMX SOLUTION FOR MOUTH SORES
  11. ALBUTEROL [Concomitant]
     Dosage: 90 MCG INHALER, 1-2 PUFFS QID PRN
  12. WARFARIN [Concomitant]
  13. DEXAMETHASONE [Concomitant]
  14. PROCHLORPERAZINE [Concomitant]
     Indication: NAUSEA
     Dosage: FREQUENCY AND DOSE: Q4-6 PRN
  15. LISINOPRIL [Concomitant]
     Dosage: FREQ: QD
  16. FOLIC ACID [Concomitant]
     Dosage: FREQ: QD
  17. VITAMINE D [Concomitant]
     Dosage: DOSE: 4000 U FREQ:QD
  18. DIPHENHYDRAMINE HCL [Concomitant]
     Indication: SOMNOLENCE
     Dosage: DOSE: 50 MG QHS PRN SLEEP
  19. HYDROCHLOROTHIAZIDE [Concomitant]
     Dosage: FREQ: QD
  20. MULTIVITAMIN NOS [Concomitant]
     Dosage: FREQ: 1 QD
  21. OXYCODONE HCL [Concomitant]
     Indication: PAIN
     Dosage: FREQUENCY: Q4-6HRS PRN
  22. DIGOXIN [Concomitant]
     Dosage: FREQUENCY: QD (DAILY)
  23. BUDESONIDE [Concomitant]
     Dosage: DOSE 3 MCG. FREQ: 2CAP/DAY

REACTIONS (3)
  - DISEASE PROGRESSION [None]
  - MALIGNANT PLEURAL EFFUSION [None]
  - PNEUMONIA [None]
